FAERS Safety Report 14167424 (Version 1)
Quarter: 2017Q4

REPORT INFORMATION
  Report Type: Spontaneous
  Country: AU (occurrence: AU)
  Receive Date: 20171107
  Receipt Date: 20171107
  Transmission Date: 20180321
  Serious: Yes (Hospitalization)
  Sender: FDA-Public Use
  Company Number: AU-MYLANLABS-2017M1070103

PATIENT
  Age: 52 Year
  Sex: Female

DRUGS (4)
  1. QUETIAPINE. [Suspect]
     Active Substance: QUETIAPINE
     Indication: BIPOLAR DISORDER
     Dosage: 200 MG, QD
  2. CARBAMAZEPINE. [Suspect]
     Active Substance: CARBAMAZEPINE
     Indication: BIPOLAR DISORDER
     Dosage: 400 MG, QD
  3. QUETIAPINE. [Suspect]
     Active Substance: QUETIAPINE
     Dosage: 800 MG, QD
  4. FLUVOXAMINE [Suspect]
     Active Substance: FLUVOXAMINE
     Indication: BIPOLAR DISORDER
     Dosage: 50 MG, QD

REACTIONS (4)
  - Erotomanic delusion [Unknown]
  - Psychotic disorder [Recovered/Resolved]
  - Mania [Recovered/Resolved]
  - Therapeutic response decreased [Unknown]
